FAERS Safety Report 25577544 (Version 1)
Quarter: 2025Q3

REPORT INFORMATION
  Report Type: Report from Study
  Country: CN (occurrence: CN)
  Receive Date: 20250718
  Receipt Date: 20250718
  Transmission Date: 20251021
  Serious: Yes (Hospitalization)
  Sender: ASTELLAS
  Company Number: CN-ASTELLAS-2025-AER-039466

PATIENT
  Age: 70 Year
  Sex: Female

DRUGS (3)
  1. TACROLIMUS [Suspect]
     Active Substance: TACROLIMUS
     Indication: Connective tissue disease-associated interstitial lung disease
     Route: 065
  2. TACROLIMUS [Suspect]
     Active Substance: TACROLIMUS
     Route: 065
  3. METHYLPREDNISOLONE [Concomitant]
     Active Substance: METHYLPREDNISOLONE
     Indication: Connective tissue disease-associated interstitial lung disease
     Dosage: 8 MG/DAY
     Route: 065

REACTIONS (3)
  - COVID-19 [Unknown]
  - SARS-CoV-2 RNA increased [Unknown]
  - Decreased immune responsiveness [Unknown]
